FAERS Safety Report 23738246 (Version 1)
Quarter: 2024Q2

REPORT INFORMATION
  Report Type: Spontaneous
  Country: CN (occurrence: CN)
  Receive Date: 20240412
  Receipt Date: 20240412
  Transmission Date: 20240716
  Serious: Yes (Hospitalization, Other)
  Sender: FDA-Public Use
  Company Number: CN-PFIZER INC-PV202400047446

PATIENT
  Age: 55 Year
  Sex: Female
  Weight: 58 kg

DRUGS (1)
  1. ABROCITINIB [Suspect]
     Active Substance: ABROCITINIB
     Indication: Eczema
     Dosage: 100 MG, 1X/DAY
     Route: 048
     Dates: start: 20240331, end: 20240403

REACTIONS (2)
  - Urticaria [Recovering/Resolving]
  - Laryngeal discomfort [Recovering/Resolving]

NARRATIVE: CASE EVENT DATE: 20240331
